FAERS Safety Report 20633275 (Version 1)
Quarter: 2022Q1

REPORT INFORMATION
  Report Type: Spontaneous
  Country: US (occurrence: None)
  Receive Date: 20220324
  Receipt Date: 20220324
  Transmission Date: 20220423
  Serious: Yes (Disabling)
  Sender: FDA-Public Use
  Company Number: None

PATIENT
  Age: 37 Year
  Sex: Male
  Weight: 76.5 kg

DRUGS (6)
  1. CIPROFLOXACIN HYDROCHLORIDE [Suspect]
     Active Substance: CIPROFLOXACIN HYDROCHLORIDE
     Indication: Urinary tract infection
     Dosage: FREQUENCY : TWICE A DAY;?
     Route: 048
     Dates: start: 20201124, end: 20201124
  2. CIPROFLOXACIN HYDROCHLORIDE [Suspect]
     Active Substance: CIPROFLOXACIN HYDROCHLORIDE
     Indication: Prostatitis
  3. ALFUZOSIN [Concomitant]
     Active Substance: ALFUZOSIN
  4. PANTOPRAZOLE [Concomitant]
     Active Substance: PANTOPRAZOLE
  5. VITAMINS [Concomitant]
     Active Substance: VITAMINS
  6. MAGNESIUM [Concomitant]
     Active Substance: MAGNESIUM

REACTIONS (18)
  - Muscle spasms [None]
  - Tendonitis [None]
  - Neuralgia [None]
  - Palpitations [None]
  - Depressed level of consciousness [None]
  - Tinnitus [None]
  - Electric shock sensation [None]
  - Burning sensation [None]
  - Paraesthesia [None]
  - Pain [None]
  - Hypoaesthesia [None]
  - Hypoaesthesia [None]
  - Pyrexia [None]
  - Fatigue [None]
  - Fatigue [None]
  - Weight decreased [None]
  - Joint swelling [None]
  - Arthropathy [None]

NARRATIVE: CASE EVENT DATE: 20201124
